FAERS Safety Report 15402527 (Version 1)
Quarter: 2018Q3

REPORT INFORMATION
  Report Type: Report from Study
  Country: None (occurrence: ZA)
  Receive Date: 20180919
  Receipt Date: 20180919
  Transmission Date: 20181010
  Serious: Yes (Hospitalization)
  Sender: FDA-Public Use
  Company Number: ZA-ABBVIE-18K-143-2486647-00

PATIENT
  Sex: Female

DRUGS (3)
  1. HUMIRA [Suspect]
     Active Substance: ADALIMUMAB
     Dosage: WEEK 4 ONWARDS 40MG EOW
     Route: 058
     Dates: start: 20180701, end: 2018
  2. HUMIRA [Suspect]
     Active Substance: ADALIMUMAB
     Indication: CROHN^S DISEASE
     Dosage: WK0=160MG
     Route: 058
     Dates: start: 20180601, end: 20180601
  3. HUMIRA [Suspect]
     Active Substance: ADALIMUMAB
     Dosage: WEEK2=80MG
     Route: 058
     Dates: start: 20180615, end: 20180615

REACTIONS (9)
  - Stenosis [Not Recovered/Not Resolved]
  - Infection [Not Recovered/Not Resolved]
  - Amnesia [Not Recovered/Not Resolved]
  - Perforation [Not Recovered/Not Resolved]
  - Renal failure [Not Recovered/Not Resolved]
  - Surgery [Not Recovered/Not Resolved]
  - Pain [Not Recovered/Not Resolved]
  - Confusional state [Not Recovered/Not Resolved]
  - Drug ineffective [Not Recovered/Not Resolved]

NARRATIVE: CASE EVENT DATE: 2018
